FAERS Safety Report 7531256-4 (Version None)
Quarter: 2011Q2

REPORT INFORMATION
  Report Type: 
  Country: None (occurrence: None)
  Receive Date: 20110608
  Receipt Date: 20110601
  Transmission Date: 20111010
  Serious: Yes (Hospitalization)
  Sender: FDA-Public Use
  Company Number: FR-TEVA-284568ISR

PATIENT
  Age: 82 Year
  Sex: Female
  Weight: 68 kg

DRUGS (1)
  1. PAMIDRONATE DISODIUM [Suspect]
     Dosage: 60 MILLIGRAM;
     Route: 058
     Dates: start: 20110104, end: 20110104

REACTIONS (1)
  - SKIN NECROSIS [None]
